FAERS Safety Report 5028982-8 (Version None)
Quarter: 2006Q2

REPORT INFORMATION
  Report Type: 
  Country: None (occurrence: None)
  Receive Date: 20060619
  Receipt Date: 20060428
  Transmission Date: 20061013
  Serious: Yes (Hospitalization)
  Sender: FDA-Public Use
  Company Number: US-SANOFI-SYNTHELABO-A03200602731

PATIENT
  Sex: Male

DRUGS (5)
  1. LEUCOVORIN [Suspect]
     Indication: COLON CANCER STAGE III
     Route: 042
  2. FLUOROURACIL [Suspect]
     Indication: COLON CANCER STAGE III
     Route: 042
  3. ELOXATIN [Suspect]
     Indication: COLON CANCER STAGE III
     Route: 042
     Dates: start: 20060403, end: 20060403
  4. MAGNESIUM [Concomitant]
     Route: 065
  5. CALCIUM GLUCONATE [Concomitant]
     Route: 065

REACTIONS (4)
  - BONE MARROW FAILURE [None]
  - MUSCLE CONTRACTIONS INVOLUNTARY [None]
  - MYOCLONUS [None]
  - NEUROPATHY [None]
